FAERS Safety Report 23386628 (Version 1)
Quarter: 2024Q1

REPORT INFORMATION
  Report Type: Spontaneous
  Country: US (occurrence: US)
  Receive Date: 20240110
  Receipt Date: 20240110
  Transmission Date: 20240410
  Serious: No
  Sender: FDA-Public Use
  Company Number: US-BRISTOL-MYERS SQUIBB COMPANY-2024-004755

PATIENT
  Age: 69 Year
  Sex: Female
  Weight: 93.89 kg

DRUGS (1)
  1. POMALYST [Suspect]
     Active Substance: POMALIDOMIDE
     Indication: Plasma cell myeloma
     Route: 048

REACTIONS (9)
  - Headache [Unknown]
  - Nausea [Unknown]
  - Chills [Unknown]
  - Cold sweat [Unknown]
  - Dyspepsia [Unknown]
  - Peripheral swelling [Unknown]
  - Urticaria [Unknown]
  - Pain of skin [Unknown]
  - Pain in extremity [Unknown]
